FAERS Safety Report 9702580 (Version 1)
Quarter: 2013Q4

REPORT INFORMATION
  Report Type: Spontaneous
  Country: NL (occurrence: NL)
  Receive Date: 20131121
  Receipt Date: 20131121
  Transmission Date: 20140711
  Serious: Yes (Other)
  Sender: FDA-Public Use
  Company Number: PHHY2013NL131308

PATIENT
  Age: 36 Year
  Sex: Male

DRUGS (5)
  1. QUETIAPINE [Suspect]
     Dosage: 300 MG, BID
  2. LORAZEPAM [Concomitant]
     Dosage: 1 MG, QD
  3. PROMETHAZINE [Concomitant]
     Dosage: 25 MG, QD
  4. VENLAFAXINE [Concomitant]
     Dosage: 225 MG, QD
  5. TEMAZEPAM [Concomitant]
     Dosage: 20 MG, QD

REACTIONS (4)
  - Blood cortisol decreased [Recovered/Resolved]
  - Weight increased [Unknown]
  - Asthenia [Unknown]
  - Fatigue [Unknown]
